FAERS Safety Report 9286125 (Version 1)
Quarter: 2013Q2

REPORT INFORMATION
  Report Type: Report from Study
  Country: CA (occurrence: CA)
  Receive Date: 20130513
  Receipt Date: 20130513
  Transmission Date: 20140414
  Serious: Yes (Other)
  Sender: FDA-Public Use
  Company Number: CA-ROCHE-718040

PATIENT
  Age: 66 Year
  Sex: Male
  Weight: 88 kg

DRUGS (7)
  1. VEMURAFENIB [Suspect]
     Indication: MALIGNANT MELANOMA
     Route: 048
     Dates: start: 20100609, end: 20100723
  2. VEMURAFENIB [Suspect]
     Dosage: DOSE REDUCED.
     Route: 048
  3. WARFARIN [Concomitant]
     Route: 065
  4. LIPITOR [Concomitant]
     Route: 065
     Dates: start: 2004, end: 20100720
  5. TYLENOL [Concomitant]
     Dosage: FREQUENCY: PRN (AS NECASSARY)
     Route: 065
  6. FISH OIL [Concomitant]
     Dosage: TOTAL DAILY DOSE: 01 TABLET.
     Route: 065
  7. NAPROXENE [Concomitant]
     Route: 065
     Dates: start: 20100720, end: 20100721

REACTIONS (2)
  - Sensorimotor disorder [Recovered/Resolved with Sequelae]
  - Sensorimotor disorder [Recovered/Resolved]
